FAERS Safety Report 20779814 (Version 5)
Quarter: 2022Q4

REPORT INFORMATION
  Report Type: Spontaneous
  Country: US (occurrence: US)
  Receive Date: 20220503
  Receipt Date: 20221006
  Transmission Date: 20230113
  Serious: No
  Sender: FDA-Public Use
  Company Number: US-PFIZER INC-202200317164

PATIENT
  Age: 69 Year
  Sex: Female

DRUGS (1)
  1. IBRANCE [Suspect]
     Active Substance: PALBOCICLIB
     Indication: Breast cancer female
     Dosage: 125 MG
     Dates: start: 20211209

REACTIONS (5)
  - Neoplasm progression [Unknown]
  - Poor quality product administered [Unknown]
  - Product physical issue [Unknown]
  - White blood cell count decreased [Unknown]
  - Fatigue [Unknown]
